FAERS Safety Report 5752165-7 (Version None)
Quarter: 2008Q2

REPORT INFORMATION
  Report Type: 
  Country: None (occurrence: None)
  Receive Date: 20080527
  Receipt Date: 20080513
  Transmission Date: 20081010
  Serious: Yes (Hospitalization)
  Sender: FDA-Public Use
  Company Number: 163-20785-08050706

PATIENT
  Age: 68 Year
  Sex: Male

DRUGS (3)
  1. THALOMID [Suspect]
     Indication: MULTIPLE MYELOMA
     Dosage: 150 MG, 1 IN 1 D, ORAL, 100 MG, 1 IN 1 D, ORAL, 50 MG, 1 IN 1 D, ORAL
     Route: 048
     Dates: start: 20070227, end: 20070301
  2. THALOMID [Suspect]
     Indication: MULTIPLE MYELOMA
     Dosage: 150 MG, 1 IN 1 D, ORAL, 100 MG, 1 IN 1 D, ORAL, 50 MG, 1 IN 1 D, ORAL
     Route: 048
     Dates: start: 20070316, end: 20070401
  3. THALOMID [Suspect]
     Indication: MULTIPLE MYELOMA
     Dosage: 150 MG, 1 IN 1 D, ORAL, 100 MG, 1 IN 1 D, ORAL, 50 MG, 1 IN 1 D, ORAL
     Route: 048
     Dates: start: 20070412, end: 20070601

REACTIONS (4)
  - CARDIAC DISORDER [None]
  - DIABETES MELLITUS [None]
  - PNEUMONIA [None]
  - RENAL DISORDER [None]
